FAERS Safety Report 9500053 (Version 2)
Quarter: 2013Q4

REPORT INFORMATION
  Report Type: Spontaneous
  Country: GB (occurrence: None)
  Receive Date: 20130903
  Receipt Date: 20131213
  Transmission Date: 20140711
  Serious: Yes (Death, Hospitalization)
  Sender: FDA-Public Use
  Company Number: 1880158

PATIENT
  Age: 74 Year
  Sex: Male

DRUGS (7)
  1. DOCETAXEL [Suspect]
     Indication: PROSTATE CANCER
     Route: 042
     Dates: start: 20130210, end: 20130210
  2. PREDNISOLONE [Concomitant]
  3. DEXAMETHASONE [Concomitant]
  4. CHLORPHENIRAMINE [Concomitant]
  5. HYDROCORTISONE [Concomitant]
  6. ONDANSETRON [Concomitant]
  7. LUTEINIZING HORMONE-RELEASING HORMONE [Concomitant]

REACTIONS (8)
  - Sepsis [None]
  - Malaise [None]
  - Neutrophilia [None]
  - Abdominal pain [None]
  - Renal failure acute [None]
  - Organ failure [None]
  - Dialysis [None]
  - Gastrointestinal disorder [None]
